FAERS Safety Report 8533554-4 (Version None)
Quarter: 2012Q2

REPORT INFORMATION
  Report Type: 
  Country: None (occurrence: None)
  Receive Date: 20120412
  Receipt Date: 20100823
  Transmission Date: 20120825
  Serious: Yes (Other)
  Sender: FDA-Public Use
  Company Number: PHHY2010US48532

PATIENT
  Sex: Female

DRUGS (3)
  1. DOXYCYCLINE [Concomitant]
  2. CEPHALEXIN [Concomitant]
  3. CLOZARIL [Suspect]
     Dosage: 650 MG

REACTIONS (3)
  - SCHIZOPHRENIA [None]
  - PAIN [None]
  - MALAISE [None]
